FAERS Safety Report 6021991-1 (Version None)
Quarter: 2008Q4

REPORT INFORMATION
  Report Type: 
  Country: None (occurrence: None)
  Receive Date: 20081229
  Receipt Date: 20081222
  Transmission Date: 20090506
  Serious: Yes (Disabling, Other)
  Sender: FDA-Public Use
  Company Number: GB-ALLERGAN-0815289US

PATIENT
  Sex: Female
  Weight: 63.492 kg

DRUGS (3)
  1. BOTOX [Suspect]
     Indication: SKIN WRINKLING
     Dosage: UNK, SINGLE
     Route: 030
     Dates: start: 20071106, end: 20071106
  2. BOTOX [Suspect]
     Dosage: UNK, SINGLE
     Route: 030
     Dates: start: 20071204, end: 20071204
  3. BOTOX [Suspect]
     Dosage: UNK, SINGLE
     Route: 030
     Dates: start: 20030905, end: 20030905

REACTIONS (5)
  - BACK PAIN [None]
  - HEADACHE [None]
  - MUSCULAR WEAKNESS [None]
  - SKIN WRINKLING [None]
  - TOOTHACHE [None]
